FAERS Safety Report 20919738 (Version 1)
Quarter: 2022Q2

REPORT INFORMATION
  Report Type: Spontaneous
  Country: US (occurrence: None)
  Receive Date: 20220603
  Receipt Date: 20220603
  Transmission Date: 20220721
  Serious: Yes (Hospitalization)
  Sender: FDA-Public Use
  Company Number: None

PATIENT
  Age: 44 Year
  Sex: Female

DRUGS (1)
  1. AMBRISENTAN [Suspect]
     Active Substance: AMBRISENTAN
     Indication: Pulmonary hypertension
     Dosage: 5MG QD ORAL?
     Route: 048
     Dates: start: 20150529

REACTIONS (7)
  - Septic shock [None]
  - Pneumococcal sepsis [None]
  - Dyspnoea [None]
  - Asthenia [None]
  - Fatigue [None]
  - Lethargy [None]
  - Dizziness [None]

NARRATIVE: CASE EVENT DATE: 20220515
